FAERS Safety Report 8198491-6 (Version None)
Quarter: 2012Q1

REPORT INFORMATION
  Report Type: 
  Country: None (occurrence: None)
  Receive Date: 20120309
  Receipt Date: 20120305
  Transmission Date: 20120608
  Serious: Yes (Other)
  Sender: FDA-Public Use
  Company Number: PHHY2012AU019110

PATIENT
  Age: 35 Year
  Sex: Female

DRUGS (2)
  1. VALERIAN [Interacting]
     Indication: RESPIRATORY DISTRESS
     Dosage: UNK UKN, UNK
  2. NORTRIPTYLINE HCL [Suspect]
     Indication: RESPIRATORY DISTRESS
     Dosage: 12.5 MG, QD

REACTIONS (12)
  - DYSPNOEA [None]
  - AKATHISIA [None]
  - DEPRESSION [None]
  - INSOMNIA [None]
  - FEELING ABNORMAL [None]
  - SUICIDAL BEHAVIOUR [None]
  - DELIRIUM [None]
  - SELF-INJURIOUS IDEATION [None]
  - DRUG INTERACTION [None]
  - ABNORMAL DREAMS [None]
  - PALPITATIONS [None]
  - HOMICIDE [None]
